FAERS Safety Report 9767390 (Version 3)
Quarter: 2014Q1

REPORT INFORMATION
  Report Type: Spontaneous
  Country: DE (occurrence: None)
  Receive Date: 20131213
  Receipt Date: 20140204
  Transmission Date: 20141002
  Serious: Yes (Hospitalization, Other)
  Sender: FDA-Public Use
  Company Number: 2013DE002871

PATIENT
  Sex: Male
  Weight: 75 kg

DRUGS (4)
  1. ICLUSIG [Suspect]
     Indication: CHRONIC MYELOID LEUKAEMIA
     Route: 048
  2. NITRENDIPINE (NITRENDIPINE) [Concomitant]
  3. CANDESARTAN (CANDESARTAN CILEXETIL) [Concomitant]
  4. HCT (HYDROCHLOROTHIAZIDE) [Concomitant]

REACTIONS (4)
  - Myocardial ischaemia [None]
  - Ischaemic stroke [None]
  - Drug ineffective [None]
  - Myocardial ischaemia [None]
